FAERS Safety Report 23554146 (Version 1)
Quarter: 2024Q1

REPORT INFORMATION
  Report Type: Spontaneous
  Country: US (occurrence: US)
  Receive Date: 20240222
  Receipt Date: 20240222
  Transmission Date: 20240409
  Serious: Yes (Other)
  Sender: FDA-Public Use
  Company Number: US-PPDUS-2024ST001120

PATIENT
  Sex: Male

DRUGS (1)
  1. ELZONRIS [Suspect]
     Active Substance: TAGRAXOFUSP-ERZS
     Indication: Product used for unknown indication
     Dosage: DAY 1 TO DAY 5
     Route: 042
     Dates: start: 20240214

REACTIONS (3)
  - Unresponsive to stimuli [Recovering/Resolving]
  - Malaise [Unknown]
  - Blood pressure decreased [Unknown]
